FAERS Safety Report 24463134 (Version 1)
Quarter: 2024Q4

REPORT INFORMATION
  Report Type: Report from Study
  Country: US (occurrence: US)
  Receive Date: 20241018
  Receipt Date: 20241018
  Transmission Date: 20250115
  Serious: No
  Sender: ROCHE
  Company Number: US-ROCHE-3016566

PATIENT
  Age: 82 Year
  Sex: Female

DRUGS (2)
  1. XOLAIR [Suspect]
     Active Substance: OMALIZUMAB
     Indication: Idiopathic urticaria
     Dosage: DATE OF SERVICE: 08/MAR/2022, 22/FEB/2022, 08/FEB/2022, 25/JAN/2022, 21/DEC/2021, 07/DEC/2021, 23/NO
     Route: 058
  2. XOLAIR [Suspect]
     Active Substance: OMALIZUMAB
     Dosage: DATES OF SERVICE: (15/NOV/2022, 29/NOV/2022)
     Route: 058

REACTIONS (2)
  - Off label use [Unknown]
  - No adverse event [Unknown]
